FAERS Safety Report 21510666 (Version 1)
Quarter: 2022Q4

REPORT INFORMATION
  Report Type: Spontaneous
  Country: US (occurrence: US)
  Receive Date: 20221026
  Receipt Date: 20221026
  Transmission Date: 20230113
  Serious: No
  Sender: FDA-Public Use
  Company Number: US-ALLERGAN-2144246US

PATIENT
  Age: 71 Year
  Sex: Male
  Weight: 72.562 kg

DRUGS (2)
  1. RAPAFLO [Suspect]
     Active Substance: SILODOSIN
     Indication: Benign prostatic hyperplasia
     Dosage: 8 MG
     Route: 048
     Dates: start: 2019
  2. ALLOPURINOL [Concomitant]
     Active Substance: ALLOPURINOL
     Indication: Gout

REACTIONS (1)
  - Retrograde ejaculation [Not Recovered/Not Resolved]

NARRATIVE: CASE EVENT DATE: 20190101
